FAERS Safety Report 4355666-1 (Version None)
Quarter: 2004Q2

REPORT INFORMATION
  Report Type: 
  Country: None (occurrence: None)
  Receive Date: 20040507
  Receipt Date: 20040422
  Transmission Date: 20050107
  Serious: Yes (Death)
  Sender: FDA-Public Use
  Company Number: US-SHR-04-023619

PATIENT
  Age: 70 Year
  Sex: Female
  Weight: 64.9 kg

DRUGS (15)
  1. BETASERON [Suspect]
     Indication: MULTIPLE SCLEROSIS
     Dosage: SEE IMAGE
     Route: 058
     Dates: start: 20040121, end: 20040101
  2. BETASERON [Suspect]
     Indication: MULTIPLE SCLEROSIS
     Dosage: SEE IMAGE
     Route: 058
     Dates: start: 20040212, end: 20040226
  3. BETASERON [Suspect]
     Indication: MULTIPLE SCLEROSIS
     Dosage: SEE IMAGE
     Route: 058
     Dates: start: 20040226
  4. ACCUPRIL [Concomitant]
  5. GLUCOTROL XL [Concomitant]
  6. DILANTIN [Concomitant]
  7. MYSOLINE ^ASTRA^ (PRIMIDONE) [Concomitant]
  8. CARBATROL [Concomitant]
  9. VALIUM/NET/ (DIAZEPAM) [Concomitant]
  10. ASPIRIN [Concomitant]
  11. ADVAIR DISKUS (SALMETEROL XINAFOATE, FLUTICASONE PROPIONATE) [Concomitant]
  12. ALBUTEROL [Concomitant]
  13. BACTRIM [Concomitant]
  14. CENTRUM (MINERAL NOS, VITAMINS NOS) [Concomitant]
  15. EXTRA STRENGTH TYLENOL [Concomitant]

REACTIONS (8)
  - CHEST PAIN [None]
  - CHRONIC OBSTRUCTIVE AIRWAYS DISEASE [None]
  - CONSTIPATION [None]
  - DYSKINESIA [None]
  - DYSPEPSIA [None]
  - HYPERTENSION [None]
  - MULTIPLE SCLEROSIS RELAPSE [None]
  - PALPITATIONS [None]
